FAERS Safety Report 5463172-6 (Version None)
Quarter: 2007Q3

REPORT INFORMATION
  Report Type: 
  Country: None (occurrence: None)
  Receive Date: 20070920
  Receipt Date: 20070917
  Transmission Date: 20080115
  Serious: Yes (Congenital Anomaly)
  Sender: FDA-Public Use
  Company Number: A0650996A

PATIENT
  Sex: Male

DRUGS (2)
  1. PAXIL [Suspect]
     Dates: start: 20050801, end: 20051201
  2. PAROXETINE HYDROCHLORIDE [Suspect]
     Dates: start: 20050801, end: 20051201

REACTIONS (5)
  - DRUG EXPOSURE DURING PREGNANCY [None]
  - FALLOT'S TETRALOGY [None]
  - PULMONARY HYPERTENSION [None]
  - PULMONARY VALVE STENOSIS [None]
  - VENTRICULAR SEPTAL DEFECT [None]
